FAERS Safety Report 10975913 (Version 2)
Quarter: 2015Q2

REPORT INFORMATION
  Report Type: Spontaneous
  Country: US (occurrence: US)
  Receive Date: 20150401
  Receipt Date: 20150525
  Transmission Date: 20150821
  Serious: No
  Sender: FDA-Public Use
  Company Number: US-JNJFOC-20130601424

PATIENT
  Age: 7 Year
  Sex: Male
  Weight: 31.75 kg

DRUGS (2)
  1. RISPERDAL [Suspect]
     Active Substance: RISPERIDONE
     Indication: SENSORY INTEGRATIVE DYSFUNCTION
     Dosage: .25MG IN MORNING AND NOON, 0.5MG IN NIGHT
     Route: 048
     Dates: start: 201301
  2. RISPERDAL [Suspect]
     Active Substance: RISPERIDONE
     Indication: AUTISM SPECTRUM DISORDER
     Dosage: .25MG IN MORNING AND NOON, 0.5MG IN NIGHT
     Route: 048
     Dates: start: 201301

REACTIONS (1)
  - Underdose [Unknown]

NARRATIVE: CASE EVENT DATE: 201305
